FAERS Safety Report 15544093 (Version 1)
Quarter: 2018Q4

REPORT INFORMATION
  Report Type: Report from Study
  Country: None (occurrence: US)
  Receive Date: 20181024
  Receipt Date: 20181024
  Transmission Date: 20190205
  Serious: Yes (Other)
  Sender: FDA-Public Use
  Company Number: US-ABBVIE-18K-163-2486457-00

PATIENT
  Age: 31 Year
  Sex: Female

DRUGS (3)
  1. HUMIRA [Suspect]
     Active Substance: ADALIMUMAB
     Route: 058
     Dates: start: 20180904
  2. HUMIRA [Suspect]
     Active Substance: ADALIMUMAB
     Indication: CROHN^S DISEASE
     Dosage: LOADING DOSE: DAY ONE
     Route: 058
     Dates: start: 20180807, end: 20180807
  3. HUMIRA [Suspect]
     Active Substance: ADALIMUMAB
     Dosage: LOADING DOSE: DAY 15
     Route: 058
     Dates: start: 20180821, end: 20180821

REACTIONS (21)
  - Endometriosis [Unknown]
  - Decreased appetite [Unknown]
  - Abdominal discomfort [Unknown]
  - Rash macular [Unknown]
  - Uterine disorder [Unknown]
  - Melanocytic naevus [Not Recovered/Not Resolved]
  - Melanocytic naevus [Unknown]
  - Urinary tract infection [Not Recovered/Not Resolved]
  - Abdominal pain [Unknown]
  - Rectal haemorrhage [Unknown]
  - Vomiting [Unknown]
  - Constipation [Unknown]
  - Malaise [Unknown]
  - Ovarian cyst [Not Recovered/Not Resolved]
  - Weight decreased [Unknown]
  - Rash [Not Recovered/Not Resolved]
  - Nausea [Unknown]
  - Dysuria [Not Recovered/Not Resolved]
  - Pyrexia [Unknown]
  - Diarrhoea [Unknown]
  - Abdominal distension [Unknown]

NARRATIVE: CASE EVENT DATE: 2018
